FAERS Safety Report 7312110-X (Version None)
Quarter: 2011Q1

REPORT INFORMATION
  Report Type: 
  Country: None (occurrence: None)
  Receive Date: 20110224
  Receipt Date: 20110223
  Transmission Date: 20110831
  Serious: Yes (Other)
  Sender: FDA-Public Use
  Company Number: GXKR2011DE01020

PATIENT
  Age: 75 Year
  Sex: Male

DRUGS (1)
  1. MTX HEXAL [Suspect]
     Indication: MUSCULOSKELETAL PAIN
     Dosage: 15 MG, QW
     Route: 048

REACTIONS (5)
  - SLEEP DISORDER [None]
  - GINGIVAL BLEEDING [None]
  - DIZZINESS [None]
  - DEPRESSION [None]
  - NAUSEA [None]
